FAERS Safety Report 12342099 (Version 1)
Quarter: 2016Q2

REPORT INFORMATION
  Report Type: Spontaneous
  Country: US (occurrence: US)
  Receive Date: 20160506
  Receipt Date: 20160506
  Transmission Date: 20160815
  Serious: No
  Sender: FDA-Public Use
  Company Number: US-ANACOR-2016ANA00013

PATIENT
  Age: 63 Year
  Sex: Female

DRUGS (2)
  1. JUBLIA [Suspect]
     Active Substance: EFINACONAZOLE
     Dosage: UNK
     Dates: start: 2015, end: 2015
  2. KERYDIN [Suspect]
     Active Substance: TAVABOROLE
     Dosage: UNK
     Dates: start: 201511, end: 20160113

REACTIONS (1)
  - Ingrowing nail [Unknown]

NARRATIVE: CASE EVENT DATE: 20160113
